FAERS Safety Report 5772716-6 (Version None)
Quarter: 2008Q2

REPORT INFORMATION
  Report Type: 
  Country: None (occurrence: None)
  Receive Date: 20080613
  Receipt Date: 20080603
  Transmission Date: 20081010
  Serious: Yes (Life-Threatening, Hospitalization, Other)
  Sender: FDA-Public Use
  Company Number: FR-PFIZER INC-2008047404

PATIENT
  Sex: Female

DRUGS (4)
  1. LYRICA [Suspect]
     Indication: PAIN
  2. SEVREDOL [Interacting]
     Indication: PAIN
  3. RIVOTRIL [Concomitant]
     Indication: PAIN
  4. ALL OTHER THERAPEUTIC PRODUCTS [Concomitant]

REACTIONS (7)
  - CARDIAC ARREST [None]
  - DRUG INEFFECTIVE [None]
  - DRUG INTERACTION [None]
  - FALL [None]
  - INTENTIONAL DRUG MISUSE [None]
  - LOSS OF CONSCIOUSNESS [None]
  - MALAISE [None]
